FAERS Safety Report 7766159-3 (Version None)
Quarter: 2011Q3

REPORT INFORMATION
  Report Type: 
  Country: None (occurrence: None)
  Receive Date: 20110921
  Receipt Date: 20110919
  Transmission Date: 20111222
  Serious: Yes (Hospitalization, Other)
  Sender: FDA-Public Use
  Company Number: US-MERCK-1103USA00068

PATIENT
  Age: 74 Year
  Sex: Female
  Weight: 77 kg

DRUGS (20)
  1. VITAMINS (UNSPECIFIED) [Concomitant]
     Route: 065
     Dates: start: 20050101, end: 20100101
  2. FLONASE [Concomitant]
     Route: 055
  3. NITROFURANTOIN [Concomitant]
     Route: 048
     Dates: start: 20070301, end: 20070301
  4. COMPAZINE [Concomitant]
     Route: 048
     Dates: start: 20070312
  5. DARVOCET-N 50 [Concomitant]
     Route: 048
     Dates: start: 20090304
  6. FOSAMAX PLUS D [Suspect]
     Indication: OSTEOPOROSIS
     Route: 048
     Dates: start: 20070301, end: 20090101
  7. CORTICOSTEROIDS (UNSPECIFIED) [Concomitant]
     Route: 065
     Dates: start: 20080101, end: 20080101
  8. FOSAMAX [Suspect]
     Route: 048
     Dates: start: 20090401, end: 20110201
  9. FOSAMAX [Suspect]
     Route: 048
     Dates: start: 20081001, end: 20090101
  10. WELCHOL [Concomitant]
     Route: 065
  11. OMEGA-3 MARINE TRIGLYCERIDES [Concomitant]
     Route: 065
     Dates: start: 20050101, end: 20100101
  12. ZETIA [Concomitant]
     Route: 048
     Dates: start: 20070911
  13. LASIX [Concomitant]
     Route: 048
     Dates: start: 20090325
  14. NATURES MADE CHOLEST OFF [Concomitant]
     Route: 065
  15. STATIN (UNSPECIFIED) [Concomitant]
     Route: 065
  16. FLUTICASONE PROPIONATE [Concomitant]
     Route: 055
     Dates: start: 20090304
  17. NIASPAN [Concomitant]
     Route: 065
  18. NIACIN [Concomitant]
     Route: 065
  19. FOSAMAX [Suspect]
     Indication: OSTEOPOROSIS
     Route: 048
     Dates: start: 20050801, end: 20071101
  20. ALENDRONATE SODIUM [Suspect]
     Indication: OSTEOPOROSIS
     Route: 048
     Dates: start: 20090101, end: 20090301

REACTIONS (30)
  - LIVER FUNCTION TEST ABNORMAL [None]
  - MUSCULOSKELETAL CHEST PAIN [None]
  - ORAL DISORDER [None]
  - OSTEOARTHRITIS [None]
  - FEMUR FRACTURE [None]
  - HEADACHE [None]
  - DYSURIA [None]
  - PRURITUS [None]
  - OSTEOPENIA [None]
  - NAUSEA [None]
  - GINGIVAL DISORDER [None]
  - FALL [None]
  - CATARACT [None]
  - VULVAL DISORDER [None]
  - LEUKOCYTOSIS [None]
  - THORACIC VERTEBRAL FRACTURE [None]
  - LACERATION [None]
  - RENAL FAILURE CHRONIC [None]
  - ASTHMA [None]
  - MYALGIA [None]
  - SCOLIOSIS [None]
  - OEDEMA PERIPHERAL [None]
  - PAIN IN EXTREMITY [None]
  - TOOTH DISORDER [None]
  - LOW TURNOVER OSTEOPATHY [None]
  - HYPERCHOLESTEROLAEMIA [None]
  - NECK PAIN [None]
  - UTERINE PROLAPSE [None]
  - ARTHROPATHY [None]
  - HYPERTRIGLYCERIDAEMIA [None]
